FAERS Safety Report 15587833 (Version 1)
Quarter: 2018Q4

REPORT INFORMATION
  Report Type: Spontaneous
  Country: US (occurrence: US)
  Receive Date: 20181105
  Receipt Date: 20181105
  Transmission Date: 20190205
  Serious: No
  Sender: FDA-Public Use
  Company Number: US-PFIZER INC-2018439812

PATIENT
  Age: 59 Year
  Sex: Female
  Weight: 41.73 kg

DRUGS (3)
  1. LEVOTHYROXINE. [Concomitant]
     Active Substance: LEVOTHYROXINE
     Indication: THYROID DISORDER
     Dosage: 0.1 UG, 1X/DAY
  2. LEVOTHYROXINE. [Concomitant]
     Active Substance: LEVOTHYROXINE
     Dosage: 0.088 UG, 1X/DAY
  3. LYRICA [Suspect]
     Active Substance: PREGABALIN
     Indication: FIBROMYALGIA
     Dosage: 150 MG, 2X/DAY, (150 MG CAPSULE IN THE MORNING AND 150MG CAPSULE AT NIGHT BY MOUTH)
     Route: 048

REACTIONS (2)
  - Withdrawal syndrome [Recovered/Resolved with Sequelae]
  - Weight decreased [Unknown]

NARRATIVE: CASE EVENT DATE: 2018
